FAERS Safety Report 10382750 (Version 1)
Quarter: 2014Q3

REPORT INFORMATION
  Report Type: Report from Study
  Country: BE (occurrence: BE)
  Receive Date: 20140813
  Receipt Date: 20140813
  Transmission Date: 20150326
  Serious: Yes (Hospitalization)
  Sender: FDA-Public Use
  Company Number: BE-EXELIXIS-XL18414004599

PATIENT
  Age: 72 Year
  Sex: Female
  Weight: 54.5 kg

DRUGS (1)
  1. XL184 [Suspect]
     Active Substance: CABOZANTINIB
     Indication: OVARIAN CANCER
     Dosage: 60 MG, QD
     Route: 048
     Dates: start: 20140630

REACTIONS (2)
  - Arthritis infective [Not Recovered/Not Resolved]
  - Swollen tongue [Not Recovered/Not Resolved]

NARRATIVE: CASE EVENT DATE: 20140804
